FAERS Safety Report 17906129 (Version 3)
Quarter: 2020Q3

REPORT INFORMATION
  Report Type: Spontaneous
  Country: AU (occurrence: AU)
  Receive Date: 20200617
  Receipt Date: 20200703
  Transmission Date: 20201103
  Serious: Yes (Death)
  Sender: FDA-Public Use
  Company Number: AU-ROCHE-2598732

PATIENT
  Age: 69 Year
  Sex: Female
  Weight: 51 kg

DRUGS (7)
  1. TECENTRIQ [Suspect]
     Active Substance: ATEZOLIZUMAB
     Indication: HEPATOCELLULAR CARCINOMA
     Dosage: NEXT DOSE: 20/MAY/2020?FORM STRENGTH: 1.2 G/3 ML
     Route: 041
     Dates: start: 20200408
  2. SORAFENIB [Concomitant]
     Active Substance: SORAFENIB
     Indication: HEPATOCELLULAR CARCINOMA
  3. AVASTIN [Suspect]
     Active Substance: BEVACIZUMAB
     Dosage: NEXT DOSE: 20/MAY/2020
     Route: 042
     Dates: start: 20200429
  4. AVASTIN [Suspect]
     Active Substance: BEVACIZUMAB
     Indication: HEPATOCELLULAR CARCINOMA
     Dosage: DOSE: (3 X EQUAL TO 840 MG AT 15MG/KG, 56KG)
     Route: 042
     Dates: start: 20200408
  5. MACROGOL 3350 [Concomitant]
     Active Substance: POLYETHYLENE GLYCOL 3350
     Route: 065
  6. PREDNISOLONE. [Concomitant]
     Active Substance: PREDNISOLONE
     Dosage: 3 TABLETS IN THE MORNING WITH FOOD
     Route: 065
  7. PARACETAMOL [Concomitant]
     Active Substance: ACETAMINOPHEN
     Indication: ANALGESIC THERAPY
     Route: 048

REACTIONS (3)
  - Intentional product use issue [Unknown]
  - Off label use [Unknown]
  - Hepatic function abnormal [Fatal]

NARRATIVE: CASE EVENT DATE: 20200520
